FAERS Safety Report 10975678 (Version 3)
Quarter: 2015Q2

REPORT INFORMATION
  Report Type: Spontaneous
  Country: US (occurrence: US)
  Receive Date: 20150401
  Receipt Date: 20150623
  Transmission Date: 20150821
  Serious: Yes (Hospitalization)
  Sender: FDA-Public Use
  Company Number: US-PFIZER INC-2015108796

PATIENT
  Age: 62 Year
  Sex: Female
  Weight: 80 kg

DRUGS (26)
  1. LYRICA [Suspect]
     Active Substance: PREGABALIN
     Indication: FIBROMYALGIA
     Dosage: 150 MG, 1X/DAY, IN THE AM
     Route: 048
     Dates: end: 201411
  2. TEMAZEPAM. [Concomitant]
     Active Substance: TEMAZEPAM
     Indication: SLEEP DISORDER
     Dosage: 1 DF, 1X/DAY
     Dates: start: 2012
  3. ADVAIR HFA [Concomitant]
     Active Substance: FLUTICASONE PROPIONATE\SALMETEROL XINAFOATE
     Indication: ASTHMA
     Dosage: 250/50 MCG 2 PUFFS TWICE A DAY INHALANT
     Dates: start: 1994
  4. PATADAY [Concomitant]
     Active Substance: OLOPATADINE HYDROCHLORIDE
     Indication: HYPERSENSITIVITY
     Dosage: 1 DROP EACH EYE 2X/DAY
     Route: 047
     Dates: start: 1995
  5. AMRIX [Concomitant]
     Active Substance: CYCLOBENZAPRINE HYDROCHLORIDE
     Indication: MUSCLE SPASMS
     Dosage: 15 MG, 1X/DAY
     Route: 048
     Dates: start: 1997
  6. BAYER WOMENS ASPIRIN PLUS CALCIUM [Concomitant]
     Dosage: 81 MG, 1X/DAY
     Route: 048
     Dates: start: 1985
  7. DEXILANT [Concomitant]
     Active Substance: DEXLANSOPRAZOLE
     Indication: GASTROINTESTINAL DISORDER
     Dosage: 60 MG, 1X/DAY
     Route: 048
     Dates: start: 2014
  8. XYZAL [Concomitant]
     Active Substance: LEVOCETIRIZINE DIHYDROCHLORIDE
     Indication: HYPERSENSITIVITY
     Dosage: 5 MG, 1X/DAY
     Route: 048
     Dates: start: 2014
  9. ROZEREM [Concomitant]
     Active Substance: RAMELTEON
     Dosage: 8 MG, 1X/DAY
     Route: 048
     Dates: start: 1995
  10. AMITIZA [Concomitant]
     Active Substance: LUBIPROSTONE
     Indication: CONSTIPATION
     Dosage: 24 MG, 2X/DAY
     Route: 048
     Dates: start: 2012
  11. LYRICA [Suspect]
     Active Substance: PREGABALIN
     Indication: PAIN
     Dosage: 150, ONCE A DAY, 3:00 PM
     Route: 048
     Dates: start: 1992
  12. BENADRYL [Concomitant]
     Active Substance: DIPHENHYDRAMINE HYDROCHLORIDE
     Indication: HYPERSENSITIVITY
     Dosage: 50 MG, 2X/DAY
     Route: 048
     Dates: start: 1983
  13. POTASSIUM [Concomitant]
     Active Substance: POTASSIUM
     Indication: SUPPLEMENTATION THERAPY
     Dosage: 10 MG, 1X/DAY
     Route: 048
     Dates: start: 2005
  14. WELLBUTRIN [Concomitant]
     Active Substance: BUPROPION HYDROCHLORIDE
     Indication: DEPRESSION
     Dosage: 150 MG, 1X/DAY
     Route: 048
     Dates: start: 1997
  15. VENTOLIN [Concomitant]
     Active Substance: ALBUTEROL SULFATE
     Indication: ASTHMA
     Dosage: INHALER 2 PUFFS TWICE A DAY AS NEEDED
     Dates: start: 2014
  16. PATANASE [Concomitant]
     Active Substance: OLOPATADINE HYDROCHLORIDE
     Indication: HYPERSENSITIVITY
     Dosage: 2X/DAY SPRAY AS NEEDED
     Route: 045
     Dates: start: 1995
  17. DIAZEPAM. [Concomitant]
     Active Substance: DIAZEPAM
     Dosage: UNK
     Dates: start: 1998
  18. AVINZA [Concomitant]
     Active Substance: MORPHINE SULFATE
     Indication: PAIN
     Dosage: 150 MG, DAILY
     Route: 048
     Dates: start: 1996
  19. DILAUDID [Concomitant]
     Active Substance: HYDROMORPHONE HYDROCHLORIDE
     Indication: PAIN
     Dosage: 2 MG, 4X/DAY AS NEEDED
     Route: 048
     Dates: start: 2014
  20. PEPCID [Concomitant]
     Active Substance: FAMOTIDINE
     Indication: GASTROINTESTINAL DISORDER
     Dosage: 20 MG, 2X/DAY
     Route: 048
     Dates: start: 2014
  21. LYRICA [Suspect]
     Active Substance: PREGABALIN
     Indication: RESTLESS LEGS SYNDROME
     Dosage: 300 MG, 1X/DAY, IN THE PM
     Route: 048
     Dates: start: 1998, end: 201411
  22. CELEBREX [Concomitant]
     Active Substance: CELECOXIB
     Indication: ARTHRITIS
     Dosage: 200 MG, 1X/DAY
     Route: 048
     Dates: start: 2014
  23. THEOPHYLLINE [Concomitant]
     Active Substance: THEOPHYLLINE ANHYDROUS
     Indication: ASTHMA
     Dosage: 400 MG, 2X/DAY
     Route: 048
     Dates: start: 1980
  24. DURAGESIC [Concomitant]
     Active Substance: FENTANYL
     Indication: PAIN
     Dosage: 50 ?G, EVERY 72 HRS
     Route: 061
     Dates: start: 2014
  25. LOPRESSOR [Concomitant]
     Active Substance: METOPROLOL TARTRATE
     Indication: CARDIAC DISORDER
     Dosage: 25 MG, 2X/DAY
     Route: 048
     Dates: start: 2014
  26. SYNTHROID [Concomitant]
     Active Substance: LEVOTHYROXINE SODIUM
     Indication: HYPOTHYROIDISM
     Dosage: 50 MG, 1X/DAY
     Route: 048
     Dates: start: 1989

REACTIONS (6)
  - Eyelid oedema [Unknown]
  - Lymphoedema [Unknown]
  - Extrasystoles [Unknown]
  - Erythema of eyelid [Unknown]
  - Cellulitis [Unknown]
  - Peripheral swelling [Unknown]

NARRATIVE: CASE EVENT DATE: 201406
